FAERS Safety Report 4836097-4 (Version None)
Quarter: 2005Q4

REPORT INFORMATION
  Report Type: 
  Country: None (occurrence: None)
  Receive Date: 20051123
  Receipt Date: 20051111
  Transmission Date: 20060501
  Serious: Yes (Other)
  Sender: FDA-Public Use
  Company Number: DE-MERCK-0511DEU00066

PATIENT
  Age: 52 Year
  Sex: Male
  Weight: 63 kg

DRUGS (6)
  1. PRIMAXIN [Suspect]
     Indication: PNEUMONIA
     Route: 042
     Dates: start: 20051007, end: 20051011
  2. PRIMAXIN [Suspect]
     Indication: EMPYEMA
     Route: 042
     Dates: start: 20051007, end: 20051011
  3. VANCOMYCIN [Concomitant]
     Indication: PNEUMONIA
     Route: 042
     Dates: start: 20050930, end: 20051011
  4. VANCOMYCIN [Concomitant]
     Indication: EMPYEMA
     Route: 042
     Dates: start: 20050930, end: 20051011
  5. CLARITHROMYCIN [Suspect]
     Indication: PNEUMONIA
     Route: 048
     Dates: start: 20051002, end: 20051011
  6. CLARITHROMYCIN [Suspect]
     Indication: EMPYEMA
     Route: 048
     Dates: start: 20051002, end: 20051011

REACTIONS (1)
  - EPILEPSY [None]
